FAERS Safety Report 13814031 (Version 1)
Quarter: 2017Q3

REPORT INFORMATION
  Report Type: Spontaneous
  Country: ES (occurrence: ES)
  Receive Date: 20170731
  Receipt Date: 20170731
  Transmission Date: 20171127
  Serious: Yes (Life-Threatening, Hospitalization)
  Sender: FDA-Public Use
  Company Number: ES-ACCORD-056536

PATIENT
  Age: 61 Year
  Sex: Female
  Weight: 78 kg

DRUGS (9)
  1. REXER FLAS 15 MG TABLETS BUCODISPERSABLE, 30 TABLETS [Concomitant]
     Dosage: 1 TABLET EACH 24 HOURS
     Dates: start: 20170615
  2. ADIRO 100 MG GASTRO-RESISTANT TABLETS EFG, 30 TABLETS [Concomitant]
     Active Substance: ASPIRIN
     Dosage: 1 TABLET EACH 24 HOURS
     Route: 048
     Dates: start: 20080813
  3. LYXUMIA 20 MICROGRAN SOLUTION FOR INJECTION, 2 PRE-FILLED PENS OF 14 [Concomitant]
     Dosage: 20 MICROGRAN?2 PRE-FILLED PENS OF 14
     Dates: start: 20141003
  4. CISPLATINO ACCORD 1 MG /ML CONCENTRATE FOR SOLUTION FOR INFUSION [Suspect]
     Active Substance: CISPLATIN
     Indication: PRODUCT USED FOR UNKNOWN INDICATION
     Dosage: 1 MG/ML ?4TH CYCLE
     Dates: start: 20170629, end: 2017
  5. METFORMIN [Concomitant]
     Active Substance: METFORMIN HYDROCHLORIDE
     Dosage: 1 TABLET EACH 24 HOURS?850 MG
     Dates: start: 20141105
  6. FUROSEMIDE. [Concomitant]
     Active Substance: FUROSEMIDE
     Dosage: 1 TABLET EACH 24 HOURS?40 MG
     Route: 042
     Dates: start: 20170706
  7. SIMVASTATIN. [Concomitant]
     Active Substance: SIMVASTATIN
     Dosage: 1 TABLET EACH 24 HOURS?10 MG
     Route: 048
     Dates: start: 20141103
  8. BISOPROLOL [Concomitant]
     Active Substance: BISOPROLOL
     Dosage: 1 TABLET EACH 24 HOURS?5MG
     Route: 048
     Dates: start: 20080813
  9. VALSARTAN. [Concomitant]
     Active Substance: VALSARTAN
     Dosage: 1 TABLET EACH 24 HOURS?80 MG
     Route: 048
     Dates: start: 20170706

REACTIONS (1)
  - Pulmonary oedema [Recovered/Resolved]

NARRATIVE: CASE EVENT DATE: 20170629
